FAERS Safety Report 23277197 (Version 2)
Quarter: 2024Q1

REPORT INFORMATION
  Report Type: Report from Study
  Country: CL (occurrence: CL)
  Receive Date: 20231208
  Receipt Date: 20240209
  Transmission Date: 20240410
  Serious: Yes (Other)
  Sender: FDA-Public Use
  Company Number: CL-JNJFOC-20231038191

PATIENT
  Age: 56 Year
  Sex: Female

DRUGS (2)
  1. SIMPONI [Suspect]
     Active Substance: GOLIMUMAB
     Indication: Rheumatoid arthritis
     Dosage: LAST DRUG APPLICATION: 27-SEP-2023
     Route: 058
     Dates: start: 20230802
  2. TOFACITINIB [Concomitant]
     Active Substance: TOFACITINIB

REACTIONS (8)
  - Tooth fracture [Not Recovered/Not Resolved]
  - Inguinal hernia [Not Recovered/Not Resolved]
  - Gastrointestinal disorder [Unknown]
  - Vulvovaginal discomfort [Unknown]
  - Tooth infection [Unknown]
  - Abdominal discomfort [Unknown]
  - Biliary colic [Unknown]
  - Hepatic pain [Unknown]

NARRATIVE: CASE EVENT DATE: 20230801
